FAERS Safety Report 17878074 (Version 1)
Quarter: 2020Q2

REPORT INFORMATION
  Report Type: Spontaneous
  Country: FR (occurrence: FR)
  Receive Date: 20200609
  Receipt Date: 20200609
  Transmission Date: 20200714
  Serious: Yes (Death, Other)
  Sender: FDA-Public Use
  Company Number: FR-BAXTER-2018BAX018924

PATIENT
  Age: 44 Year
  Sex: Female

DRUGS (9)
  1. LAPATINIB [Suspect]
     Active Substance: LAPATINIB
     Indication: BREAST CANCER FEMALE
     Dosage: UNK , CYCLIC (FOR 1 YEAR)
     Route: 065
  2. ENDOXAN 1000 MG, POUDRE POUR SOLUTIONINJECTABLE [Suspect]
     Active Substance: CYCLOPHOSPHAMIDE
     Indication: BREAST CANCER FEMALE
     Dosage: 500 MG/M2, CYCLIC (6 CYCLES)
     Route: 065
  3. DOCETAXEL. [Suspect]
     Active Substance: DOCETAXEL
     Indication: BREAST CANCER FEMALE
     Dosage: 75 MG/M2, CYCLIC (6 CYCLES)
     Route: 065
  4. DAUNORUBICIN [Suspect]
     Active Substance: DAUNORUBICIN
     Indication: ACUTE MYELOID LEUKAEMIA
     Dosage: 60 MG/M2, CYCLIC (3PLUS7)
     Route: 065
  5. ARACYTINE [Concomitant]
     Active Substance: CYTARABINE
     Dosage: UNK, CYCLIC (HIGH-DOSE)
     Route: 065
  6. TRASTUZUMAB. [Suspect]
     Active Substance: TRASTUZUMAB
     Indication: BREAST CANCER FEMALE
     Dosage: UNK, CYCLIC  (FOR 1 YEAR)
     Route: 065
  7. ARACYTINE [Concomitant]
     Active Substance: CYTARABINE
     Indication: ACUTE MYELOID LEUKAEMIA
     Dosage: 200 MG/M2, CYCLIC (3PLUS7)
     Route: 065
  8. DOXORUBICIN HYDROCHLORIDE. [Suspect]
     Active Substance: DOXORUBICIN HYDROCHLORIDE
     Indication: BREAST CANCER FEMALE
     Dosage: 50 MG/M2, CYCLIC (6 CYCLES)
     Route: 065
  9. TAMOXIFEN CITRATE. [Suspect]
     Active Substance: TAMOXIFEN CITRATE
     Indication: BREAST CANCER FEMALE
     Dosage: UNK
     Route: 065

REACTIONS (4)
  - Cardiotoxicity [Fatal]
  - Acute myeloid leukaemia [Fatal]
  - Second primary malignancy [Fatal]
  - Cardiac arrest [Fatal]

NARRATIVE: CASE EVENT DATE: 20090901
